FAERS Safety Report 10033635 (Version 2)
Quarter: 2014Q2

REPORT INFORMATION
  Report Type: Spontaneous
  Country: US (occurrence: US)
  Receive Date: 20140325
  Receipt Date: 20140414
  Transmission Date: 20141212
  Serious: No
  Sender: FDA-Public Use
  Company Number: US-BIOGENIDEC-2014BI023512

PATIENT
  Age: 61 Year
  Sex: Female

DRUGS (7)
  1. TECFIDERA [Suspect]
     Indication: MULTIPLE SCLEROSIS
     Route: 048
     Dates: start: 201402
  2. TECFIDERA [Suspect]
     Indication: MULTIPLE SCLEROSIS
     Route: 048
     Dates: start: 201402
  3. TECFIDERA [Suspect]
     Indication: MULTIPLE SCLEROSIS
     Route: 048
     Dates: start: 201402
  4. ADVIL [Concomitant]
  5. BACLOFEN [Concomitant]
  6. ALLEGRA ALL [Concomitant]
  7. VITAMIN D [Concomitant]

REACTIONS (4)
  - Tinnitus [Unknown]
  - Head discomfort [Unknown]
  - Feeling abnormal [Unknown]
  - Underdose [Unknown]
